FAERS Safety Report 14419191 (Version 1)
Quarter: 2018Q1

REPORT INFORMATION
  Report Type: Spontaneous
  Country: US (occurrence: US)
  Receive Date: 20180120
  Receipt Date: 20180120
  Transmission Date: 20180509
  Serious: Yes (Hospitalization)
  Sender: FDA-Public Use
  Company Number: None

PATIENT
  Sex: Male

DRUGS (11)
  1. NOVOLOG [Concomitant]
     Active Substance: INSULIN ASPART
  2. VITAMIN D3 [Concomitant]
     Active Substance: CHOLECALCIFEROL
  3. LANTUS [Concomitant]
     Active Substance: INSULIN GLARGINE
  4. CYCLOBENZAPR [Concomitant]
     Active Substance: CYCLOBENZAPRINE
  5. CARAFATE [Concomitant]
     Active Substance: SUCRALFATE
  6. POTASSIUM [Concomitant]
     Active Substance: POTASSIUM
  7. SILDENAFIL. [Suspect]
     Active Substance: SILDENAFIL
     Indication: PULMONARY ARTERIAL HYPERTENSION
     Route: 048
     Dates: start: 20100824
  8. GABAPENTIN. [Concomitant]
     Active Substance: GABAPENTIN
  9. FERROUS SULF [Concomitant]
     Active Substance: FERROUS SULFATE
  10. ZOCOR [Concomitant]
     Active Substance: SIMVASTATIN
  11. PEPCID [Concomitant]
     Active Substance: FAMOTIDINE

REACTIONS (1)
  - Nephrolithiasis [None]
